FAERS Safety Report 14302743 (Version 1)
Quarter: 2017Q4

REPORT INFORMATION
  Report Type: Spontaneous
  Country: US (occurrence: US)
  Receive Date: 20171219
  Receipt Date: 20171219
  Transmission Date: 20180321
  Serious: Yes (Hospitalization)
  Sender: FDA-Public Use
  Company Number: None

PATIENT
  Sex: Female

DRUGS (28)
  1. CLINDAMYCIN/BENZOLY [Concomitant]
  2. METRONIDAZOLE. [Concomitant]
     Active Substance: METRONIDAZOLE
  3. METOCLOPRAMIDE. [Concomitant]
     Active Substance: METOCLOPRAMIDE
  4. PROCHLORPERAZINE. [Concomitant]
     Active Substance: PROCHLORPERAZINE
  5. MIRTAZAPINE. [Concomitant]
     Active Substance: MIRTAZAPINE
  6. MELOXICAM. [Concomitant]
     Active Substance: MELOXICAM
  7. ESTRACE [Concomitant]
     Active Substance: ESTRADIOL
  8. GABAPENTIN. [Concomitant]
     Active Substance: GABAPENTIN
  9. HYDROCO/APAP [Concomitant]
     Active Substance: ACETAMINOPHEN\HYDROCODONE
  10. STELARA [Suspect]
     Active Substance: USTEKINUMAB
     Indication: CROHN^S DISEASE
     Dosage: 90 MG Q8WKS SC
     Route: 058
     Dates: start: 20170830
  11. LORAZEPAM. [Concomitant]
     Active Substance: LORAZEPAM
  12. BACLOFEN. [Concomitant]
     Active Substance: BACLOFEN
  13. NORTRIPTYLINE [Concomitant]
     Active Substance: NORTRIPTYLINE
  14. SUMATRIPTAN. [Concomitant]
     Active Substance: SUMATRIPTAN
  15. CIMZIA [Suspect]
     Active Substance: CERTOLIZUMAB PEGOL
     Indication: CROHN^S DISEASE
  16. CALCITRIOL. [Concomitant]
     Active Substance: CALCITRIOL
  17. POLYETH GLYC [Concomitant]
     Active Substance: POLYETHYLENE GLYCOLS
  18. ONDANSETRON [Concomitant]
     Active Substance: ONDANSETRON
  19. HYDROCORTISONE. [Concomitant]
     Active Substance: HYDROCORTISONE
  20. FAMOTIDINE. [Concomitant]
     Active Substance: FAMOTIDINE
  21. OXYCODONE [Concomitant]
     Active Substance: OXYCODONE
  22. NYSTATIN. [Concomitant]
     Active Substance: NYSTATIN
  23. PREDNISONE. [Concomitant]
     Active Substance: PREDNISONE
  24. TRAMADOL. [Concomitant]
     Active Substance: TRAMADOL
  25. MESALAMINE. [Concomitant]
     Active Substance: MESALAMINE
  26. TIZANIDINE. [Concomitant]
     Active Substance: TIZANIDINE
  27. CIPRO [Concomitant]
     Active Substance: CIPROFLOXACIN HYDROCHLORIDE
  28. IMIPRAMINE [Concomitant]
     Active Substance: IMIPRAMINE

REACTIONS (1)
  - Hospitalisation [None]
